FAERS Safety Report 10906832 (Version 4)
Quarter: 2016Q1

REPORT INFORMATION
  Report Type: Spontaneous
  Country: BE (occurrence: BE)
  Receive Date: 20150312
  Receipt Date: 20160225
  Transmission Date: 20160525
  Serious: Yes (Other)
  Sender: FDA-Public Use
  Company Number: BE-UCBSA-2015007302

PATIENT
  Age: 75 Year
  Sex: Female

DRUGS (4)
  1. CIMZIA [Suspect]
     Active Substance: CERTOLIZUMAB PEGOL
     Indication: RHEUMATOID ARTHRITIS
     Dosage: 200 MG, EV 2 WEEKS(QOW)
     Route: 058
     Dates: start: 20140422, end: 20150127
  2. METHOTREXATE [Concomitant]
     Active Substance: METHOTREXATE
     Indication: RHEUMATOID ARTHRITIS
     Dosage: 10 MG, WEEKLY (QW)
     Route: 048
     Dates: start: 20131224
  3. NOBIRETIC [Concomitant]
     Indication: HYPERTENSION
     Dosage: UNK, ONCE DAILY (QD)
     Route: 048
     Dates: start: 20141001
  4. D-CURE [Concomitant]
     Indication: PROPHYLAXIS
     Dosage: UNK, MONTHLY (QM)
     Route: 048
     Dates: start: 20121112

REACTIONS (1)
  - Neuroendocrine carcinoma of the skin [Recovered/Resolved with Sequelae]

NARRATIVE: CASE EVENT DATE: 20141127
